FAERS Safety Report 9653669 (Version 1)
Quarter: 2013Q4

REPORT INFORMATION
  Report Type: Spontaneous
  Country: US (occurrence: US)
  Receive Date: 20131029
  Receipt Date: 20131029
  Transmission Date: 20140711
  Serious: No
  Sender: FDA-Public Use
  Company Number: US-BIOGENIDEC-2013BI080068

PATIENT
  Age: 33 Year
  Sex: Female

DRUGS (11)
  1. TECFIDERA [Suspect]
     Indication: MULTIPLE SCLEROSIS
     Route: 048
     Dates: start: 20130717
  2. TECFIDERA [Suspect]
     Indication: MULTIPLE SCLEROSIS
     Route: 048
     Dates: start: 20130724
  3. FLEXERIL [Concomitant]
     Route: 048
  4. METFORMIN [Concomitant]
     Route: 048
  5. BUSPAR [Concomitant]
     Route: 048
  6. CELEXA [Concomitant]
     Route: 048
  7. VITAMIN B12 [Concomitant]
  8. HYDROCHLOROTHIAZIDE [Concomitant]
     Route: 048
  9. POTASSIUM CHLORIDE ER [Concomitant]
  10. VITAMIN C [Concomitant]
  11. METOPROLOL TARTATE [Concomitant]

REACTIONS (1)
  - Feeling hot [Unknown]
